FAERS Safety Report 6722202-1 (Version None)
Quarter: 2010Q2

REPORT INFORMATION
  Report Type: 
  Country: None (occurrence: None)
  Receive Date: 20100505
  Receipt Date: 20100325
  Transmission Date: 20101027
  Serious: No
  Sender: FDA-Public Use
  Company Number: WAES 1003USA04247

PATIENT
  Sex: Male

DRUGS (1)
  1. ISENTRESS [Suspect]

REACTIONS (1)
  - MIGRAINE [None]
